FAERS Safety Report 11719955 (Version 1)
Quarter: 2015Q4

REPORT INFORMATION
  Report Type: Spontaneous
  Country: FR (occurrence: FR)
  Receive Date: 20151110
  Receipt Date: 20151110
  Transmission Date: 20160304
  Serious: Yes (Life-Threatening)
  Sender: FDA-Public Use
  Company Number: FR-ROCHE-1656796

PATIENT
  Age: 54 Year
  Sex: Male

DRUGS (8)
  1. EZETROL [Concomitant]
     Active Substance: EZETIMIBE
  2. KAYEXALATE [Concomitant]
     Active Substance: SODIUM POLYSTYRENE SULFONATE
  3. VENOFER (FRANCE) [Concomitant]
  4. UVEDOSE [Concomitant]
     Active Substance: CHOLECALCIFEROL
  5. NOVOMIX [Concomitant]
     Active Substance: INSULIN ASPART
  6. CALCIDIA [Concomitant]
     Active Substance: CALCIUM POLYCARBOPHIL
  7. ROCEPHINE [Suspect]
     Active Substance: CEFTRIAXONE SODIUM
     Indication: PRODUCT USED FOR UNKNOWN INDICATION
     Route: 042
     Dates: start: 20151010, end: 20151010
  8. SPIRIVA [Concomitant]
     Active Substance: TIOTROPIUM BROMIDE MONOHYDRATE

REACTIONS (2)
  - Anaphylactic shock [Recovered/Resolved]
  - Cardio-respiratory arrest [Recovered/Resolved]

NARRATIVE: CASE EVENT DATE: 20151010
